FAERS Safety Report 6099433-X (Version None)
Quarter: 2009Q1

REPORT INFORMATION
  Report Type: 
  Country: None (occurrence: None)
  Receive Date: 20090226
  Receipt Date: 20090212
  Transmission Date: 20090719
  Serious: Yes (Other)
  Sender: FDA-Public Use
  Company Number: 2009S1002787

PATIENT
  Age: 53 Year
  Sex: Female
  Weight: 60 kg

DRUGS (5)
  1. DURAZANIL 6 (BROMAZEPAM) [Suspect]
     Indication: ACCIDENTAL EXPOSURE
     Dosage: ONCE; ORAL
     Route: 048
  2. LEVOPROME [Suspect]
     Indication: ACCIDENTAL EXPOSURE
     Dosage: ONCE; ORAL
     Route: 048
  3. RISPERIDONE [Suspect]
     Indication: ACCIDENTAL EXPOSURE
     Dosage: 0.5 MG; ONCE; ORAL
     Route: 048
  4. CLONAZEPAM [Suspect]
     Indication: ACCIDENTAL EXPOSURE
     Dosage: 1.5 MG; ONCE; ORAL
     Route: 048
  5. PHENYTOIN [Suspect]
     Indication: ACCIDENTAL EXPOSURE
     Dosage: ONCE; ORAL
     Route: 048

REACTIONS (1)
  - ACCIDENTAL EXPOSURE [None]
